FAERS Safety Report 24595077 (Version 1)
Quarter: 2024Q4

REPORT INFORMATION
  Report Type: Spontaneous
  Country: FR (occurrence: FR)
  Receive Date: 20241108
  Receipt Date: 20241108
  Transmission Date: 20250114
  Serious: Yes (Other)
  Sender: GE HEALTHCARE
  Company Number: None

PATIENT
  Age: 55 Year
  Sex: Female

DRUGS (4)
  1. VISIPAQUE [Suspect]
     Active Substance: IODIXANOL
     Indication: Diagnostic procedure
     Dosage: 60 ML, TOTAL
     Route: 042
     Dates: start: 20210122, end: 20210122
  2. IOMERON [Suspect]
     Active Substance: IOMEPROL
     Indication: Arteriovenous fistula
     Dosage: 130 ML, TOTAL
     Route: 042
     Dates: start: 20210423, end: 20210423
  3. LIDOCAINE [Concomitant]
     Active Substance: LIDOCAINE
     Indication: Arteriovenous fistula
     Dosage: 2 ML
     Route: 058
     Dates: start: 20210122, end: 20210122
  4. LIDOCAINE [Concomitant]
     Active Substance: LIDOCAINE
     Dosage: 8 ML, SINGLE
     Route: 058
     Dates: start: 20210423, end: 20210423

REACTIONS (1)
  - Fixed eruption [Recovered/Resolved]

NARRATIVE: CASE EVENT DATE: 20210423
